FAERS Safety Report 7720379-2 (Version None)
Quarter: 2011Q3

REPORT INFORMATION
  Report Type: 
  Country: None (occurrence: None)
  Receive Date: 20110830
  Receipt Date: 20110830
  Transmission Date: 20111222
  Serious: Yes (Other)
  Sender: FDA-Public Use
  Company Number: None

PATIENT
  Sex: Male
  Weight: 90.7194 kg

DRUGS (4)
  1. MORPHINE [Suspect]
     Indication: PAIN
     Dosage: 3 TAB/TWICE DAY DAILY ABOUT 10 YEARS
  2. MORPHINE [Suspect]
     Indication: NEUROPATHY PERIPHERAL
     Dosage: 3 TAB/TWICE DAY DAILY ABOUT 10 YEARS
  3. MORPHINE [Suspect]
     Indication: PAIN
     Dosage: 1 TAB/EVERY 8 HRS DAILY ABOUT 5 YEARS
  4. MORPHINE [Suspect]
     Indication: NEUROPATHY PERIPHERAL
     Dosage: 1 TAB/EVERY 8 HRS DAILY ABOUT 5 YEARS

REACTIONS (5)
  - NAUSEA [None]
  - PRURITUS [None]
  - CONSTIPATION [None]
  - DRUG INEFFECTIVE [None]
  - HEADACHE [None]
